FAERS Safety Report 9174212 (Version 1)
Quarter: 2013Q1

REPORT INFORMATION
  Report Type: Spontaneous
  Country: FR (occurrence: None)
  Receive Date: 20130315
  Receipt Date: 20130315
  Transmission Date: 20140127
  Serious: Yes (Hospitalization)
  Sender: FDA-Public Use
  Company Number: 2013-03548

PATIENT
  Age: 58 Year
  Sex: Female

DRUGS (1)
  1. CARBOPLATIN (WATSON LABORATORIES) (CARBOPLATIN) UNK, UNKUNK? [Suspect]
     Route: 042
     Dates: start: 20121009, end: 20121009

REACTIONS (7)
  - Dyspnoea [None]
  - Tachycardia [None]
  - Headache [None]
  - Pruritus [None]
  - Erythema [None]
  - Nausea [None]
  - Drug hypersensitivity [None]
